FAERS Safety Report 20177151 (Version 3)
Quarter: 2022Q2

REPORT INFORMATION
  Report Type: Report from Study
  Country: CA (occurrence: CA)
  Receive Date: 20211213
  Receipt Date: 20220629
  Transmission Date: 20220720
  Serious: Yes (Other)
  Sender: FDA-Public Use
  Company Number: CA-BAYER-2021A265490

PATIENT
  Sex: Female

DRUGS (10)
  1. EYLEA [Suspect]
     Active Substance: AFLIBERCEPT
     Indication: Diabetic retinal oedema
     Dosage: UNK, OD EYE, TOTAL OF 7 INJECTIONS ON THE RIGHT EYE AND 13 ON THE LEFT EYE; SOL. FOR INJ
     Route: 031
     Dates: start: 20200207
  2. EYLEA [Suspect]
     Active Substance: AFLIBERCEPT
     Dosage: UNK, OS EYE; SOLUTION FOR INJECTION
  3. INSULIN NOS [Concomitant]
     Active Substance: INSULIN NOS
     Indication: Diabetes mellitus
  4. MAXIDEX [Concomitant]
     Active Substance: DEXAMETHASONE
     Indication: Toxic anterior segment syndrome
     Dosage: 1 DF, 6ID
     Route: 047
  5. MAXIDEX [Concomitant]
     Active Substance: DEXAMETHASONE
     Indication: Eye inflammation
  6. AZARGA [Concomitant]
     Active Substance: BRINZOLAMIDE\TIMOLOL MALEATE
     Indication: Product used for unknown indication
     Dosage: UNK UNK, BID
  7. UNSPECIFIED INGREDIENT [Concomitant]
     Active Substance: UNSPECIFIED INGREDIENT
     Indication: Product used for unknown indication
     Dosage: UNK (OD - TOTAL 7 INJECTIONS)
     Route: 031
     Dates: start: 20200207, end: 20211124
  8. UNSPECIFIED INGREDIENT [Concomitant]
     Active Substance: UNSPECIFIED INGREDIENT
     Dosage: UNK (OS - TOTAL 13 INJECTIONS)
     Route: 031
     Dates: start: 20200207, end: 20211124
  9. LUMIGAN [Concomitant]
     Active Substance: BIMATOPROST
     Indication: Product used for unknown indication
     Dosage: UNK UNK, UNK
     Route: 065
     Dates: end: 20220608
  10. ACUVAIL [Concomitant]
     Active Substance: KETOROLAC TROMETHAMINE
     Indication: Product used for unknown indication
     Dosage: UNK UNK, QID
     Route: 065

REACTIONS (4)
  - Toxic anterior segment syndrome [Not Recovered/Not Resolved]
  - Cataract operation [Unknown]
  - Macular oedema [Unknown]
  - Retinitis [Unknown]

NARRATIVE: CASE EVENT DATE: 20211207
